FAERS Safety Report 6087526-2 (Version None)
Quarter: 2009Q1

REPORT INFORMATION
  Report Type: 
  Country: None (occurrence: None)
  Receive Date: 20090218
  Receipt Date: 20090218
  Transmission Date: 20090719
  Serious: No
  Sender: FDA-Public Use
  Company Number: None

PATIENT
  Age: 54 Year
  Sex: Male
  Weight: 162 kg

DRUGS (2)
  1. TRAMADOL HCL [Suspect]
     Indication: INSOMNIA
     Dosage: 10 MG ONCE DAILY PO
     Route: 048
     Dates: start: 20081216, end: 20090120
  2. ZOLPIDEM [Suspect]
     Indication: PAIN
     Dosage: 50 MG 3 TIMES DAILY PO
     Route: 048
     Dates: start: 20081216, end: 20090120

REACTIONS (1)
  - CATARACT [None]
